FAERS Safety Report 8901380 (Version 2)
Quarter: 2014Q2

REPORT INFORMATION
  Report Type: Report from Study
  Country: CA (occurrence: CA)
  Receive Date: 20121109
  Receipt Date: 20140502
  Transmission Date: 20141212
  Serious: Yes (Other)
  Sender: FDA-Public Use
  Company Number: CA-JNJFOC-20121100274

PATIENT
  Age: 66 Year
  Sex: Female
  Weight: 80 kg

DRUGS (10)
  1. REMICADE [Suspect]
     Indication: RHEUMATOID ARTHRITIS
     Dosage: THE PATIENT HAD 58 INFLIXIMAB INFUSIONS
     Route: 042
     Dates: start: 20140424
  2. REMICADE [Suspect]
     Indication: RHEUMATOID ARTHRITIS
     Dosage: THE PATIENT HAD 58 INFLIXIMAB INFUSIONS
     Route: 042
     Dates: start: 20040719
  3. METHOTREXATE [Concomitant]
     Indication: RHEUMATOID ARTHRITIS
     Route: 048
  4. MELOXICAM [Concomitant]
     Indication: RHEUMATOID ARTHRITIS
     Route: 065
  5. CIPROLEX [Concomitant]
     Route: 065
  6. ZOPICLONE [Concomitant]
     Indication: SLEEP DISORDER
     Route: 065
  7. NEXIUM [Concomitant]
     Route: 065
  8. CRESTOR [Concomitant]
     Indication: BLOOD CHOLESTEROL INCREASED
     Route: 065
  9. ADALAT [Concomitant]
     Indication: HYPERTENSION
     Route: 065
  10. FOLIC ACID [Concomitant]
     Route: 065

REACTIONS (3)
  - Parkinson^s disease [Not Recovered/Not Resolved]
  - Cataract [Not Recovered/Not Resolved]
  - Macular degeneration [Not Recovered/Not Resolved]
